FAERS Safety Report 17451123 (Version 1)
Quarter: 2020Q1

REPORT INFORMATION
  Report Type: Spontaneous
  Country: US (occurrence: US)
  Receive Date: 20200211
  Receipt Date: 20200211
  Transmission Date: 20200409
  Serious: No
  Sender: FDA-Public Use
  Company Number: None

PATIENT
  Age: 18 Year
  Sex: Female

DRUGS (6)
  1. TOBI PODHALER [Suspect]
     Active Substance: TOBRAMYCIN
     Dates: start: 20140205
  2. LEVAALBUTEROL [Concomitant]
  3. FAMOLIDINE [Concomitant]
  4. PULMOZYME [Suspect]
     Active Substance: DORNASE ALFA
     Indication: CYSTIC FIBROSIS
     Route: 055
     Dates: start: 20140205, end: 20140826
  5. MVWD5000 [Concomitant]
  6. TRIKALTA [Concomitant]

REACTIONS (1)
  - Influenza [None]

NARRATIVE: CASE EVENT DATE: 20200120
